FAERS Safety Report 24417075 (Version 1)
Quarter: 2024Q4

REPORT INFORMATION
  Report Type: Spontaneous
  Country: US (occurrence: None)
  Receive Date: 20241009
  Receipt Date: 20241009
  Transmission Date: 20250114
  Serious: Yes (Hospitalization)
  Sender: Public
  Company Number: None

PATIENT
  Age: 73 Year
  Sex: Male

DRUGS (1)
  1. LENALIDOMIDE [Suspect]
     Active Substance: LENALIDOMIDE
     Dosage: OTHER FREQUENCY : 1DAILY21ON7OFF;?
     Route: 048
     Dates: start: 202405

REACTIONS (2)
  - Pneumonia [None]
  - Blood pressure decreased [None]

NARRATIVE: CASE EVENT DATE: 20241006
